FAERS Safety Report 8235801-5 (Version None)
Quarter: 2012Q1

REPORT INFORMATION
  Report Type: 
  Country: None (occurrence: None)
  Receive Date: 20120326
  Receipt Date: 20120316
  Transmission Date: 20120608
  Serious: Yes (Hospitalization)
  Sender: FDA-Public Use
  Company Number: DE-ELI_LILLY_AND_COMPANY-DE201203005035

PATIENT
  Age: 71 Year
  Sex: Male

DRUGS (2)
  1. CALCIMAGON                         /00751501/ [Concomitant]
  2. FORTEO [Suspect]
     Indication: OSTEOPOROSIS
     Dosage: UNK, QD
     Route: 058
     Dates: start: 20100922

REACTIONS (2)
  - FLUID RETENTION [None]
  - PULMONARY OEDEMA [None]
